FAERS Safety Report 17939445 (Version 1)
Quarter: 2020Q2

REPORT INFORMATION
  Report Type: Spontaneous
  Country: PT (occurrence: PT)
  Receive Date: 20200624
  Receipt Date: 20200624
  Transmission Date: 20200714
  Serious: Yes (Hospitalization, Other)
  Sender: FDA-Public Use
  Company Number: PT-BAUSCH-BL-2020-017804

PATIENT
  Age: 72 Year
  Sex: Male

DRUGS (9)
  1. BORTEZOMIB. [Suspect]
     Active Substance: BORTEZOMIB
     Indication: PLASMA CELL MYELOMA
     Dosage: ON DAYS 1, 4, 8, 11, 22, 25, 29 AND 32 EVERY 6 WEEKS FOR A PLANNED TOTAL OF 4 CYCLES
     Route: 065
     Dates: start: 2010, end: 201007
  2. MELPHALAN. [Suspect]
     Active Substance: MELPHALAN
     Indication: PLASMA CELL MYELOMA
     Dosage: FOR A PLANNED TOTAL OF 4 CYCLES
     Route: 065
     Dates: start: 2010, end: 201007
  3. PREDNISOLONE. [Suspect]
     Active Substance: PREDNISOLONE
     Indication: PLASMA CELL MYELOMA
     Dosage: ON DAYS 1-4 FOR A PLANNED TOTAL OF 4 CYCLES
     Route: 065
     Dates: start: 2010, end: 201007
  4. ACYCLOVIR. [Concomitant]
     Active Substance: ACYCLOVIR
     Indication: PROPHYLAXIS
     Route: 048
     Dates: start: 2010
  5. LENALIDOMIDE [Suspect]
     Active Substance: LENALIDOMIDE
     Route: 065
     Dates: start: 2010
  6. DEXAMETHASONE. [Suspect]
     Active Substance: DEXAMETHASONE
     Indication: PLASMA CELL MYELOMA
     Route: 065
     Dates: start: 201007, end: 201007
  7. LENALIDOMIDE [Suspect]
     Active Substance: LENALIDOMIDE
     Route: 065
     Dates: start: 2010, end: 2010
  8. ZOLEDRONATE [Concomitant]
     Active Substance: ZOLEDRONIC ACID
     Indication: PROPHYLAXIS
     Route: 042
     Dates: start: 2010
  9. LENALIDOMIDE [Suspect]
     Active Substance: LENALIDOMIDE
     Indication: PLASMA CELL MYELOMA
     Route: 065
     Dates: start: 201007, end: 201007

REACTIONS (2)
  - Pulmonary embolism [Unknown]
  - Therapy non-responder [Unknown]

NARRATIVE: CASE EVENT DATE: 2010
